FAERS Safety Report 12540405 (Version 2)
Quarter: 2016Q3

REPORT INFORMATION
  Report Type: Spontaneous
  Country: US (occurrence: US)
  Receive Date: 20160708
  Receipt Date: 20160805
  Transmission Date: 20161109
  Serious: No
  Sender: FDA-Public Use
  Company Number: US-PFIZER INC-2016300214

PATIENT
  Age: 63 Year
  Sex: Male

DRUGS (10)
  1. PROBIOTIC /06395501/ [Concomitant]
     Active Substance: BIFIDOBACTERIUM ANIMALIS SUBSP. LACTIS
     Dosage: UNK
  2. ASPIRIN 81 [Concomitant]
     Active Substance: ASPIRIN
     Dosage: UNK
  3. CERAVET [Concomitant]
     Dosage: UNK
  4. COCONUT OIL [Concomitant]
     Active Substance: COCONUT OIL
     Dosage: UNK
  5. FISH OIL [Concomitant]
     Active Substance: FISH OIL
     Dosage: UNK
  6. GERITOL /00508001/ [Concomitant]
     Dosage: UNK
  7. RAPAFLO [Concomitant]
     Active Substance: SILODOSIN
     Dosage: UNK
  8. SUTENT [Suspect]
     Active Substance: SUNITINIB MALATE
     Indication: RENAL CANCER
     Dosage: 50 MG, CYCLIC (DAILY, FOR 28 DAYS ON THEN 14 DAYS OFF)
     Route: 048
  9. VITAMIN B12 [Concomitant]
     Active Substance: CYANOCOBALAMIN
     Dosage: UNK
  10. RANITIDINE HCL [Concomitant]
     Active Substance: RANITIDINE HYDROCHLORIDE
     Dosage: UNK

REACTIONS (7)
  - Dysgeusia [Unknown]
  - Erythema [Unknown]
  - Pain in extremity [Unknown]
  - Diarrhoea [Unknown]
  - Fatigue [Unknown]
  - Blister [Unknown]
  - Skin exfoliation [Unknown]
